FAERS Safety Report 6127689-3 (Version None)
Quarter: 2009Q1

REPORT INFORMATION
  Report Type: 
  Country: None (occurrence: None)
  Receive Date: 20090323
  Receipt Date: 20090311
  Transmission Date: 20090719
  Serious: Yes (Death)
  Sender: FDA-Public Use
  Company Number: FR-AVENTIS-200911059GDDC

PATIENT
  Age: 50 Year
  Sex: Male
  Weight: 73 kg

DRUGS (12)
  1. AFLIBERCEPT [Suspect]
     Indication: LUNG NEOPLASM MALIGNANT
     Route: 042
     Dates: start: 20081223, end: 20081223
  2. DOCETAXEL [Suspect]
     Indication: LUNG NEOPLASM MALIGNANT
     Route: 042
     Dates: start: 20081223, end: 20081223
  3. CISPLATIN [Suspect]
     Indication: LUNG NEOPLASM MALIGNANT
     Route: 042
     Dates: start: 20081223, end: 20081223
  4. FLUOROURACIL [Suspect]
     Route: 042
     Dates: start: 20081223, end: 20081223
  5. RENITEC                            /00574901/ [Concomitant]
     Indication: HYPERTENSION
     Route: 048
     Dates: start: 20080902
  6. SOLUPRED                           /00016201/ [Concomitant]
     Dates: start: 20081218
  7. OMEPRAZOLE [Concomitant]
     Indication: GASTROOESOPHAGEAL REFLUX DISEASE
     Route: 048
     Dates: start: 20081223, end: 20090124
  8. XANAX [Concomitant]
     Indication: INSOMNIA
     Route: 048
     Dates: start: 20090124, end: 20090124
  9. CIFLOX                             /00697201/ [Concomitant]
     Indication: COUGH
     Route: 048
     Dates: start: 20090124, end: 20090124
  10. AUGMENTIN '125' [Concomitant]
     Indication: COUGH
     Route: 048
     Dates: start: 20090124, end: 20090124
  11. ROCEPHIN [Concomitant]
     Route: 042
     Dates: start: 20090124, end: 20090124
  12. EXACYL [Concomitant]
     Route: 042
     Dates: start: 20090124, end: 20090125

REACTIONS (8)
  - CYANOSIS [None]
  - DYSPNOEA [None]
  - HAEMATOCRIT DECREASED [None]
  - HAEMOGLOBIN DECREASED [None]
  - NECROSIS OF BRONCHIOLI [None]
  - PYREXIA [None]
  - RESPIRATORY DISTRESS [None]
  - WHITE BLOOD CELL COUNT INCREASED [None]
